FAERS Safety Report 7790269-8 (Version None)
Quarter: 2011Q3

REPORT INFORMATION
  Report Type: 
  Country: None (occurrence: None)
  Receive Date: 20110930
  Receipt Date: 20110926
  Transmission Date: 20111222
  Serious: Yes (Life-Threatening, Hospitalization)
  Sender: FDA-Public Use
  Company Number: PHHY2011DK85281

PATIENT
  Sex: Female

DRUGS (7)
  1. LANSOPRAZOLE [Concomitant]
     Indication: ABDOMINAL PAIN
     Dates: start: 20110621, end: 20110921
  2. CALCIUM CARBONATE [Concomitant]
     Indication: BLOOD CALCIUM DECREASED
     Dates: start: 20110621, end: 20110921
  3. KETESSE [Suspect]
     Indication: PAIN
     Dosage: STYRKE: 25 MG
     Route: 048
     Dates: start: 20110621, end: 20110922
  4. GLUCOSAMIN PHARMA NORD [Suspect]
     Indication: ARTHRITIS
     Dosage: STYRKE: 400 MG
     Route: 048
     Dates: start: 20110621
  5. VESICARE [Suspect]
     Indication: URINARY INCONTINENCE
     Dosage: STYRKE: 10 MG
     Route: 048
     Dates: start: 20110621
  6. CORODIL COMP [Suspect]
     Indication: HYPERTENSION
     Dosage: DOSIS: 1 TABLET DGL, STYRKE: 20+12,5 MG
     Route: 048
     Dates: start: 20110621, end: 20110922
  7. METFORMIN ACTAVIS [Suspect]
     Indication: DIABETES MELLITUS
     Dosage: STYRKE: 500 MG
     Route: 048
     Dates: start: 20110621, end: 20110921

REACTIONS (3)
  - ABDOMINAL PAIN [None]
  - LACTIC ACIDOSIS [None]
  - RENAL FAILURE ACUTE [None]
